FAERS Safety Report 12035681 (Version 1)
Quarter: 2016Q1

REPORT INFORMATION
  Report Type: Spontaneous
  Country: US (occurrence: US)
  Receive Date: 20160207
  Receipt Date: 20160207
  Transmission Date: 20160526
  Serious: No
  Sender: FDA-Public Use
  Company Number: US-NGX_00981_2012

PATIENT
  Age: 60 Year
  Sex: Male
  Weight: 82 kg

DRUGS (5)
  1. METHADONE [Concomitant]
     Active Substance: METHADONE HYDROCHLORIDE
     Dosage: 6 PILLS, QD
  2. METHADONE [Concomitant]
     Active Substance: METHADONE HYDROCHLORIDE
     Indication: COMPLEX REGIONAL PAIN SYNDROME
     Dosage: DF [1-2]
     Route: 048
     Dates: start: 200501
  3. QUTENZA [Suspect]
     Active Substance: CAPSAICIN
     Indication: COMPLEX REGIONAL PAIN SYNDROME
     Dosage: [PATCH, APPLIED ONCE TO THE FOOT, ANTERIOR ASPECT OF GREAT TOE]
     Route: 061
     Dates: start: 20120307, end: 20120307
  4. QUTENZA [Suspect]
     Active Substance: CAPSAICIN
     Indication: NEUROPATHY PERIPHERAL
  5. METHADONE [Concomitant]
     Active Substance: METHADONE HYDROCHLORIDE
     Dosage: 5 MG, 1-2 BID
     Route: 048
     Dates: start: 200001

REACTIONS (7)
  - Immobile [Recovering/Resolving]
  - Pain [Unknown]
  - Application site pain [Not Recovered/Not Resolved]
  - Drug ineffective [Unknown]
  - Mobility decreased [Not Recovered/Not Resolved]
  - Condition aggravated [Unknown]
  - Application site erythema [Not Recovered/Not Resolved]

NARRATIVE: CASE EVENT DATE: 2012
